FAERS Safety Report 24367347 (Version 1)
Quarter: 2024Q3

REPORT INFORMATION
  Report Type: Spontaneous
  Country: US (occurrence: None)
  Receive Date: 20240925
  Receipt Date: 20240925
  Transmission Date: 20241016
  Serious: Yes (Hospitalization, Other)
  Sender: Public
  Company Number: None

PATIENT
  Age: 16 Year
  Sex: Female
  Weight: 65.25 kg

DRUGS (5)
  1. LEXAPRO [Suspect]
     Active Substance: ESCITALOPRAM OXALATE
     Dosage: OTHER FREQUENCY : IT WAS DIFFERENT;?OTHER ROUTE : THUR IV AND BY MOUTH;?
     Route: 050
     Dates: end: 20240605
  2. ATIVAN [Suspect]
     Active Substance: LORAZEPAM
  3. HUMAN IMMUNOGLOBULIN G [Suspect]
     Active Substance: HUMAN IMMUNOGLOBULIN G
  4. RISPERIDONE [Suspect]
     Active Substance: RISPERIDONE
  5. OLANZAPINE [Concomitant]
     Active Substance: OLANZAPINE

REACTIONS (5)
  - Complication associated with device [None]
  - Therapy interrupted [None]
  - Abnormal dreams [None]
  - Hallucination [None]
  - Psychotic disorder [None]

NARRATIVE: CASE EVENT DATE: 20240505
